FAERS Safety Report 5936162-4 (Version None)
Quarter: 2008Q4

REPORT INFORMATION
  Report Type: 
  Country: None (occurrence: None)
  Receive Date: 20081030
  Receipt Date: 20081027
  Transmission Date: 20090506
  Serious: Yes (Hospitalization, Other)
  Sender: FDA-Public Use
  Company Number: CA-WYE-G02460908

PATIENT
  Sex: Male
  Weight: 103.6 kg

DRUGS (23)
  1. RAPAMUNE [Suspect]
     Indication: PROPHYLAXIS AGAINST TRANSPLANT REJECTION
     Route: 048
     Dates: start: 20080926, end: 20081016
  2. RAPAMUNE [Suspect]
     Route: 048
     Dates: start: 20081017
  3. TACROLIMUS [Concomitant]
     Dates: start: 20080122, end: 20080131
  4. TACROLIMUS [Concomitant]
     Dates: start: 20080201, end: 20080417
  5. TACROLIMUS [Concomitant]
     Dates: start: 20080418, end: 20080926
  6. PREDNISONE TAB [Concomitant]
     Route: 048
     Dates: start: 20080122, end: 20080417
  7. PREDNISONE TAB [Concomitant]
     Route: 048
     Dates: start: 20080418, end: 20080717
  8. PREDNISONE TAB [Concomitant]
     Route: 048
     Dates: start: 20080718
  9. AVAPRO [Concomitant]
     Dosage: 300 MG EVERY
     Dates: start: 20080414
  10. CLONIDINE [Concomitant]
     Dosage: .3 MG EVERY
     Dates: start: 20071020, end: 20071120
  11. CLONIDINE [Concomitant]
     Dosage: .6 MG EVERY
     Dates: start: 20071121, end: 20080121
  12. CLONIDINE [Concomitant]
     Dosage: .3 MG EVERY
     Dates: start: 20080122, end: 20080128
  13. CLONIDINE [Concomitant]
     Dosage: .2 MG EVERY
     Dates: start: 20080129, end: 20080204
  14. CLONIDINE [Concomitant]
     Dosage: .1 MG EVERY
     Dates: start: 20080205, end: 20080211
  15. NORVASC [Concomitant]
     Dosage: 20 MG EVERY
     Dates: start: 20071026, end: 20080121
  16. NORVASC [Concomitant]
     Dosage: 10 MG EVERY
     Dates: start: 20080122, end: 20080125
  17. METOPROLOL TARTRATE [Concomitant]
     Dosage: 100 MG EVERY
     Dates: start: 20080128, end: 20080417
  18. METOPROLOL TARTRATE [Concomitant]
     Dosage: 200 MG EVERY
     Dates: start: 20080418
  19. METOPROLOL TARTRATE [Concomitant]
     Dosage: 50 MG EVERY
     Dates: start: 20071018, end: 20071020
  20. ATGAM [Concomitant]
     Dosage: 75 MG EVERY
     Dates: start: 20071016, end: 20071020
  21. MYFORTIC [Concomitant]
     Dates: start: 20080122, end: 20080129
  22. MYFORTIC [Concomitant]
     Dates: start: 20080212, end: 20080908
  23. MYFORTIC [Concomitant]
     Dates: start: 20080909, end: 20080926

REACTIONS (2)
  - BK VIRUS INFECTION [None]
  - TRANSPLANT REJECTION [None]
